FAERS Safety Report 19950481 (Version 1)
Quarter: 2021Q4

REPORT INFORMATION
  Report Type: Spontaneous
  Country: US (occurrence: US)
  Receive Date: 20211013
  Receipt Date: 20211013
  Transmission Date: 20220303
  Serious: Yes (Other)
  Sender: FDA-Public Use
  Company Number: US-DRREDDYS-LIT/USA/21/0142510

PATIENT
  Age: 10 Month
  Sex: Male

DRUGS (2)
  1. VIGABATRIN [Suspect]
     Active Substance: VIGABATRIN
     Indication: Tuberous sclerosis complex
     Dosage: 150 MG/KG/DAY
  2. VIGABATRIN [Suspect]
     Active Substance: VIGABATRIN
     Dosage: DOSE REDUCED TO 100 MG/KG/DAY

REACTIONS (1)
  - Brain scan abnormal [Recovered/Resolved]
